FAERS Safety Report 7992946-2 (Version None)
Quarter: 2011Q4

REPORT INFORMATION
  Report Type: 
  Country: None (occurrence: None)
  Receive Date: 20111219
  Receipt Date: 20110623
  Transmission Date: 20120403
  Serious: No
  Sender: FDA-Public Use
  Company Number: US-ASTRAZENECA-2011SE37968

PATIENT
  Sex: Male
  Weight: 72.6 kg

DRUGS (4)
  1. ATENOLOL [Concomitant]
  2. ASPIRIN [Concomitant]
  3. CRESTOR [Suspect]
     Route: 048
  4. PLAVIX [Concomitant]

REACTIONS (1)
  - ACTIVITIES OF DAILY LIVING IMPAIRED [None]
